FAERS Safety Report 6288170-4 (Version None)
Quarter: 2009Q3

REPORT INFORMATION
  Report Type: 
  Country: None (occurrence: None)
  Receive Date: 20090729
  Receipt Date: 20090722
  Transmission Date: 20100115
  Serious: Yes (Life-Threatening)
  Sender: FDA-Public Use
  Company Number: JP-ASTRAZENECA-2009SE02919

PATIENT
  Age: 65 Year
  Sex: Male

DRUGS (13)
  1. MEROPEN [Suspect]
     Indication: PSEUDOMONAS INFECTION
     Route: 041
     Dates: start: 20090602, end: 20090602
  2. TACROLIMUS [Concomitant]
     Indication: IMMUNOSUPPRESSION
  3. PARIET [Concomitant]
     Indication: REFLUX OESOPHAGITIS
     Route: 048
     Dates: start: 20050712, end: 20090602
  4. MAGNESIUM OXIDE [Concomitant]
     Indication: CONSTIPATION
     Route: 048
     Dates: start: 20050912, end: 20090602
  5. PROGRAF [Concomitant]
     Indication: LIVER TRANSPLANT REJECTION
     Route: 048
     Dates: start: 20050912, end: 20090602
  6. GLYCYRON [Concomitant]
     Indication: CHOLESTASIS
     Route: 048
     Dates: start: 20060208, end: 20090602
  7. GASMOTIN [Concomitant]
     Indication: GASTRITIS
     Route: 048
     Dates: start: 20070209, end: 20090602
  8. LIPITOR [Concomitant]
     Indication: HYPERLIPIDAEMIA
     Route: 048
     Dates: start: 20071214, end: 20090602
  9. CHOLEBRINE [Concomitant]
     Indication: HYPERCHOLESTEROLAEMIA
     Route: 048
     Dates: start: 20071221, end: 20090602
  10. FERROMIA [Concomitant]
     Indication: ANAEMIA
     Route: 048
     Dates: start: 20090302, end: 20090602
  11. GLAKAY [Concomitant]
     Indication: OSTEOPOROSIS
     Route: 048
     Dates: start: 20090302, end: 20090602
  12. EPOGIN INJ. [Concomitant]
     Indication: NEPHROGENIC ANAEMIA
     Route: 058
     Dates: start: 20090302, end: 20090602
  13. URSO 250 [Concomitant]
     Indication: CHOLESTASIS
     Route: 048
     Dates: start: 20050912, end: 20090602

REACTIONS (4)
  - ACUTE RESPIRATORY DISTRESS SYNDROME [None]
  - HEPATIC FUNCTION ABNORMAL [None]
  - RENAL IMPAIRMENT [None]
  - SHOCK [None]
